FAERS Safety Report 4941038-5 (Version None)
Quarter: 2006Q1

REPORT INFORMATION
  Report Type: 
  Country: None (occurrence: None)
  Receive Date: 20060307
  Receipt Date: 20060220
  Transmission Date: 20060701
  Serious: Yes (Life-Threatening, Hospitalization)
  Sender: FDA-Public Use
  Company Number: 2006-DE-00959GD

PATIENT
  Age: 68 Year
  Sex: Female

DRUGS (2)
  1. MORPHINE [Suspect]
     Indication: PROCEDURAL PAIN
     Dosage: 50 MG IN THE FIRST 36 HOURS AFTER SURGERY
  2. CODEINE (CODEINE) [Suspect]
     Indication: PROCEDURAL PAIN
     Dosage: 76 MG IN THE FIRST 36 HOURS AFTER SURGERY

REACTIONS (12)
  - BLOOD SODIUM DECREASED [None]
  - CATHETER RELATED COMPLICATION [None]
  - COMMUNICATION DISORDER [None]
  - DRUG TOXICITY [None]
  - HEART RATE DECREASED [None]
  - HYPERKALAEMIA [None]
  - MIOSIS [None]
  - RENAL FAILURE [None]
  - RESPIRATORY DEPRESSION [None]
  - RESPIRATORY RATE DECREASED [None]
  - SOMNOLENCE [None]
  - THERAPY NON-RESPONDER [None]
